FAERS Safety Report 4351129-8 (Version None)
Quarter: 2004Q2

REPORT INFORMATION
  Report Type: 
  Country: None (occurrence: None)
  Receive Date: 20040430
  Receipt Date: 20040315
  Transmission Date: 20050107
  Serious: Yes (Other)
  Sender: FDA-Public Use
  Company Number: DE-MERCK-0403DEU00108

PATIENT
  Age: 23 Year
  Sex: Male
  Weight: 75 kg

DRUGS (2)
  1. ALCOHOL [Suspect]
     Route: 048
  2. PROPECIA [Suspect]
     Indication: MALE PATTERN BALDNESS
     Route: 048

REACTIONS (10)
  - BLOOD PRESSURE INCREASED [None]
  - DIZZINESS [None]
  - FALL [None]
  - HEAD INJURY [None]
  - LOSS OF CONSCIOUSNESS [None]
  - RASH [None]
  - SWELLING FACE [None]
  - TELANGIECTASIA [None]
  - TONGUE BITING [None]
  - TONGUE HAEMORRHAGE [None]
